FAERS Safety Report 11222950 (Version 1)
Quarter: 2015Q2

REPORT INFORMATION
  Report Type: Spontaneous
  Country: US (occurrence: US)
  Receive Date: 20150626
  Receipt Date: 20150626
  Transmission Date: 20150821
  Serious: Yes (Death, Life-Threatening, Other)
  Sender: FDA-Public Use
  Company Number: US-COREPHARMA LLC-2015COR00126

PATIENT
  Sex: Male

DRUGS (1)
  1. DEXTROAMPHETAMINE/AMPHETAMINE [Suspect]
     Active Substance: AMPHETAMINE\DEXTROAMPHETAMINE
     Dosage: 2080 MG, ONCE

REACTIONS (7)
  - Intracranial aneurysm [Fatal]
  - Bradycardia [Unknown]
  - Hyperhidrosis [Unknown]
  - Hypertension [Unknown]
  - Overdose [Fatal]
  - Respiratory arrest [Unknown]
  - Mental status changes [Unknown]
